FAERS Safety Report 4617091-5 (Version None)
Quarter: 2005Q1

REPORT INFORMATION
  Report Type: 
  Country: None (occurrence: None)
  Receive Date: 20050323
  Receipt Date: 20050224
  Transmission Date: 20050727
  Serious: Yes (Hospitalization)
  Sender: FDA-Public Use
  Company Number: FR-ROCHE-396724

PATIENT
  Age: 18 Year
  Sex: Male

DRUGS (1)
  1. ROACCUTANE [Suspect]
     Indication: ACNE
     Route: 048
     Dates: start: 20041015

REACTIONS (6)
  - ALCOHOL USE [None]
  - AMNESIA [None]
  - ELECTROENCEPHALOGRAM ABNORMAL [None]
  - FATIGUE [None]
  - HEADACHE [None]
  - SOMNOLENCE [None]
